FAERS Safety Report 5302346-1 (Version None)
Quarter: 2007Q2

REPORT INFORMATION
  Report Type: 
  Country: None (occurrence: None)
  Receive Date: 20070419
  Receipt Date: 20070416
  Transmission Date: 20071010
  Serious: Yes (Hospitalization)
  Sender: FDA-Public Use
  Company Number: FR-BRISTOL-MYERS SQUIBB COMPANY-13750435

PATIENT
  Age: 42 Year
  Sex: Male
  Weight: 113 kg

DRUGS (6)
  1. REYATAZ [Suspect]
     Indication: HIV INFECTION
     Route: 048
     Dates: start: 20070110, end: 20070203
  2. KIVEXA [Suspect]
     Dates: start: 20070110, end: 20070203
  3. BACTRIM [Suspect]
     Dates: start: 20070110, end: 20070203
  4. NORVIR [Concomitant]
     Dates: start: 20070110
  5. EPIVIR [Concomitant]
  6. VIDEX [Concomitant]

REACTIONS (4)
  - OEDEMA [None]
  - PYREXIA [None]
  - RASH [None]
  - RENAL FAILURE ACUTE [None]
